FAERS Safety Report 4517009-X (Version None)
Quarter: 2004Q4

REPORT INFORMATION
  Report Type: 
  Country: None (occurrence: None)
  Receive Date: 20041130
  Receipt Date: 20041122
  Transmission Date: 20050328
  Serious: Yes (Hospitalization, Other)
  Sender: FDA-Public Use
  Company Number: 2004079226

PATIENT
  Age: 50 Year
  Sex: Male

DRUGS (7)
  1. LIPITOR [Suspect]
     Indication: HYPERLIPIDAEMIA
     Dosage: 10 MG (1 IN 1 D), ORAL
     Route: 048
     Dates: start: 20040801, end: 20040901
  2. CARVEDILOL [Suspect]
     Indication: ILL-DEFINED DISORDER
     Dosage: ORAL
     Route: 048
  3. CANDESRATAN CILEXETIL (CANDESARTTAN CILEXETIL) [Suspect]
     Indication: ILL-DEFINED DISORDER
     Dosage: ORAL
     Route: 048
  4. AMLODIPINE [Concomitant]
  5. INSULIN [Concomitant]
  6. AMLODIPINE BESYLATE [Concomitant]
  7. ANGIOTENSIN II ANTAGONISTS (ANGIOTENSIN II ANTAGONISTS) [Concomitant]

REACTIONS (3)
  - BLOOD CREATINE PHOSPHOKINASE INCREASED [None]
  - EYE OPERATION [None]
  - MYOPATHY [None]
